FAERS Safety Report 9299391 (Version 3)
Quarter: 2013Q3

REPORT INFORMATION
  Report Type: Spontaneous
  Country: US (occurrence: US)
  Receive Date: 20130520
  Receipt Date: 20130723
  Transmission Date: 20140515
  Serious: Yes (Hospitalization, Other)
  Sender: FDA-Public Use
  Company Number: US-B.I. PHARMACEUTICALS,INC./RIDGEFIELD-2013-BI-13929BP

PATIENT
  Age: 84 Year
  Sex: Male
  Weight: 83.91 kg

DRUGS (5)
  1. PRADAXA [Suspect]
     Indication: ANTICOAGULANT THERAPY
     Dosage: 300 MG
     Route: 048
     Dates: start: 20110718, end: 20110917
  2. PRADAXA [Suspect]
     Indication: ATRIAL FIBRILLATION
  3. ATENOLOL [Concomitant]
     Dosage: 25 MG
     Route: 048
  4. ENALAPRIL [Concomitant]
     Dosage: 10 MG
     Route: 048
  5. METFORMIN [Concomitant]
     Route: 048

REACTIONS (5)
  - Gastrointestinal haemorrhage [Recovered/Resolved]
  - Haemorrhagic anaemia [Unknown]
  - Coagulopathy [Unknown]
  - Increased tendency to bruise [Unknown]
  - Haemorrhagic diathesis [Unknown]
